FAERS Safety Report 10912790 (Version 1)
Quarter: 2015Q1

REPORT INFORMATION
  Report Type: Spontaneous
  Country: LV (occurrence: LV)
  Receive Date: 20150313
  Receipt Date: 20150313
  Transmission Date: 20150721
  Serious: Yes (Hospitalization)
  Sender: FDA-Public Use
  Company Number: LV-PFIZER INC-2015086333

PATIENT
  Age: 44 Year
  Sex: Male
  Weight: 57 kg

DRUGS (6)
  1. STILNOX [Concomitant]
     Active Substance: ZOLPIDEM TARTRATE
     Indication: SLEEP DISORDER
     Dosage: 10 MG, 1X/DAY
     Route: 048
     Dates: start: 20150128, end: 20150203
  2. TERIZIDONE [Concomitant]
     Active Substance: TERIZIDONE
     Indication: TUBERCULOSIS
     Dosage: 250 MG, 3X/DAY
     Route: 048
     Dates: start: 20140904
  3. PROTIONAMIDUM [Concomitant]
     Indication: TUBERCULOSIS
     Dosage: 250 MG, 3X/DAY
     Route: 048
     Dates: start: 20140904
  4. LEVOFLOXACINUM [Concomitant]
     Indication: TUBERCULOSIS
     Dosage: 1 G, 1X/DAY
     Route: 048
     Dates: start: 20150107
  5. ZYVOXID [Suspect]
     Active Substance: LINEZOLID
     Indication: TUBERCULOSIS
     Dosage: 600 MG, 2X/DAY
     Route: 048
     Dates: start: 20150129, end: 20150203
  6. DELTYBA [Suspect]
     Active Substance: DELAMANID
     Indication: TUBERCULOSIS
     Dosage: 100 MG, 2X/DAY
     Route: 048
     Dates: start: 20150129, end: 20150203

REACTIONS (5)
  - Face oedema [Recovered/Resolved]
  - Erythema [Recovered/Resolved]
  - Glossodynia [Recovered/Resolved]
  - Facial pain [Recovered/Resolved]
  - Off label use [Unknown]

NARRATIVE: CASE EVENT DATE: 20150203
